FAERS Safety Report 7237168-8 (Version None)
Quarter: 2011Q1

REPORT INFORMATION
  Report Type: 
  Country: None (occurrence: None)
  Receive Date: 20110121
  Receipt Date: 20110112
  Transmission Date: 20110831
  Serious: Yes (Other)
  Sender: FDA-Public Use
  Company Number: PHFR2010GB02327

PATIENT
  Sex: Male

DRUGS (2)
  1. CLOZARIL [Suspect]
     Route: 048
     Dates: start: 19920514, end: 19000101
  2. CLOZARIL [Suspect]
     Indication: SCHIZOPHRENIA
     Dosage: 250 MG MANE, 300 MG NOCTE
     Route: 048
     Dates: start: 19920101

REACTIONS (9)
  - MEAN CELL VOLUME DECREASED [None]
  - PLATELET COUNT INCREASED [None]
  - ANAEMIA [None]
  - HAEMATOCRIT DECREASED [None]
  - HAEMORRHOIDS [None]
  - CONSTIPATION [None]
  - HAEMOGLOBIN DECREASED [None]
  - MEAN CELL HAEMOGLOBIN DECREASED [None]
  - RED BLOOD CELL COUNT DECREASED [None]
